FAERS Safety Report 13901882 (Version 1)
Quarter: 2017Q3

REPORT INFORMATION
  Report Type: Spontaneous
  Country: US (occurrence: US)
  Receive Date: 20170824
  Receipt Date: 20170824
  Transmission Date: 20171127
  Serious: Yes (Death, Hospitalization, Other)
  Sender: FDA-Public Use
  Company Number: US-APOTEX-2017AP016985

PATIENT
  Age: 37 Year
  Sex: Female

DRUGS (1)
  1. TRAZODONE HYDROCHLORIDE. [Suspect]
     Active Substance: TRAZODONE HYDROCHLORIDE
     Indication: PRODUCT USED FOR UNKNOWN INDICATION
     Dosage: 6.45 G, UNK
     Route: 048

REACTIONS (8)
  - Intentional overdose [Unknown]
  - Somnolence [Unknown]
  - Seizure [Unknown]
  - Sinus tachycardia [Unknown]
  - Hyponatraemia [Recovered/Resolved]
  - Brain oedema [Fatal]
  - Brain death [Fatal]
  - Inappropriate antidiuretic hormone secretion [Unknown]
